FAERS Safety Report 5514645-9 (Version None)
Quarter: 2007Q4

REPORT INFORMATION
  Report Type: 
  Country: None (occurrence: None)
  Receive Date: 20071113
  Receipt Date: 20071102
  Transmission Date: 20080405
  Serious: Yes (Death)
  Sender: FDA-Public Use
  Company Number: JP-BRISTOL-MYERS SQUIBB COMPANY-13976121

PATIENT
  Age: 69 Year
  Sex: Male

DRUGS (2)
  1. ARIPIPRAZOLE [Suspect]
     Indication: SCHIZOPHRENIA
     Dosage: NOT CONTINUING THE DRUG.
     Route: 048
     Dates: start: 20071018
  2. QUETIAPINE FUMARATE [Concomitant]
     Route: 048

REACTIONS (1)
  - SUDDEN DEATH [None]
